FAERS Safety Report 9641964 (Version 1)
Quarter: 2013Q4

REPORT INFORMATION
  Report Type: Spontaneous
  Country: GB (occurrence: None)
  Receive Date: 20131022
  Receipt Date: 20131022
  Transmission Date: 20140711
  Serious: Yes (Other)
  Sender: FDA-Public Use
  Company Number: KAD201310-001364

PATIENT
  Age: 52 Year
  Sex: Female

DRUGS (3)
  1. RIBAVIRIN (RIBAVIRIN) [Suspect]
     Indication: HEPATITIS C
     Dates: start: 20130209
  2. PEGINTERFERON ALFA-2B [Suspect]
     Indication: HEPATITIS C
     Route: 058
  3. INCIVO (TELAPREVIR) [Suspect]
     Indication: HEPATITIS C
     Route: 048
     Dates: start: 20130209

REACTIONS (11)
  - Anaemia [None]
  - Abnormal dreams [None]
  - Hypoglycaemia [None]
  - Photosensitivity reaction [None]
  - Abdominal distension [None]
  - Pruritus [None]
  - Rash pruritic [None]
  - Oral pain [None]
  - Oropharyngeal pain [None]
  - Nausea [None]
  - Alopecia [None]
